FAERS Safety Report 5144778-0 (Version None)
Quarter: 2006Q4

REPORT INFORMATION
  Report Type: 
  Country: None (occurrence: None)
  Receive Date: 20061103
  Receipt Date: 20061103
  Transmission Date: 20070319
  Serious: Yes (Hospitalization)
  Sender: FDA-Public Use
  Company Number: None

PATIENT
  Age: 35 Year
  Sex: Female

DRUGS (1)
  1. RENAGEL [Suspect]
     Indication: HYPERPHOSPHATAEMIA
     Dosage: 2400 MG TID PO
     Route: 048
     Dates: start: 20040101, end: 20061015

REACTIONS (4)
  - HAEMODIALYSIS [None]
  - PERITONEAL DIALYSIS [None]
  - PERITONITIS [None]
  - SMALL INTESTINAL OBSTRUCTION [None]
